FAERS Safety Report 8360875-0 (Version None)
Quarter: 2012Q2

REPORT INFORMATION
  Report Type: 
  Country: None (occurrence: None)
  Receive Date: 20120515
  Receipt Date: 20120504
  Transmission Date: 20120825
  Serious: Yes (Hospitalization)
  Sender: FDA-Public Use
  Company Number: FR-JNJFOC-20120506501

PATIENT
  Sex: Female

DRUGS (12)
  1. METHOTREXATE [Suspect]
     Indication: RHEUMATOID ARTHRITIS
     Route: 048
     Dates: start: 19980101, end: 20120401
  2. ORENCIA [Suspect]
     Indication: RHEUMATOID ARTHRITIS
     Route: 050
     Dates: start: 20101115, end: 20120323
  3. PANTOPRAZOLE [Concomitant]
  4. PREDNISONE TAB [Concomitant]
  5. INDAPAMIDE [Concomitant]
  6. PREDNISONE TAB [Concomitant]
  7. REMICADE [Suspect]
     Indication: RHEUMATOID ARTHRITIS
     Route: 042
     Dates: start: 20020101, end: 20100601
  8. ENBREL [Suspect]
     Indication: RHEUMATOID ARTHRITIS
     Route: 058
     Dates: start: 20100601, end: 20101001
  9. LEVOTHYROXINE SODIUM [Concomitant]
  10. FLECAINIDE ACETATE [Concomitant]
  11. PERINDOPRIL ERBUMINE [Concomitant]
  12. ZOLPIDEM [Concomitant]

REACTIONS (6)
  - CARDIAC FAILURE [None]
  - ACUTE MYELOID LEUKAEMIA [None]
  - GOITRE [None]
  - LUNG DISORDER [None]
  - CEREBROVASCULAR ACCIDENT [None]
  - KNEE ARTHROPLASTY [None]
